FAERS Safety Report 12578467 (Version 1)
Quarter: 2016Q3

REPORT INFORMATION
  Report Type: Report from Study
  Country: US (occurrence: US)
  Receive Date: 20160721
  Receipt Date: 20160721
  Transmission Date: 20161109
  Serious: Yes (Other)
  Sender: FDA-Public Use
  Company Number: PHEH2016US017748

PATIENT
  Sex: Female

DRUGS (1)
  1. GLEEVEC [Suspect]
     Active Substance: IMATINIB MESYLATE
     Indication: CHORDOMA
     Route: 065

REACTIONS (4)
  - Metastases to lung [Unknown]
  - Chordoma [Unknown]
  - Malignant neoplasm progression [Unknown]
  - Product use issue [Unknown]
